FAERS Safety Report 17339476 (Version 1)
Quarter: 2020Q1

REPORT INFORMATION
  Report Type: Spontaneous
  Country: US (occurrence: US)
  Receive Date: 20200128
  Receipt Date: 20200128
  Transmission Date: 20200409
  Serious: No
  Sender: FDA-Public Use
  Company Number: None

PATIENT
  Age: 26 Year
  Sex: Female

DRUGS (6)
  1. BOTOX [Suspect]
     Active Substance: ONABOTULINUMTOXINA
     Indication: MUSCLE RELAXANT THERAPY
     Dates: start: 20191220, end: 20191220
  2. VITAMIN D [Concomitant]
     Active Substance: VITAMIN D NOS
  3. MULTIVITAMIN [Concomitant]
     Active Substance: VITAMINS
  4. PROVIGIL [Concomitant]
     Active Substance: MODAFINIL
  5. PROPANOLOL [Concomitant]
     Active Substance: PROPRANOLOL HYDROCHLORIDE
  6. VITAMIN B COMPLEX [Concomitant]
     Active Substance: CYANOCOBALAMIN\DEXPANTHENOL\NIACINAMIDE\PYRIDOXINE HYDROCHLORIDE\RIBOFLAVIN 5^-PHOSPHATE SODIUM\THIAMINE HYDROCHLORIDE\VITAMIN B COMPLEX

REACTIONS (3)
  - Wrong technique in product usage process [None]
  - Suspected product quality issue [None]
  - Eyelid ptosis [None]

NARRATIVE: CASE EVENT DATE: 20191220
